FAERS Safety Report 19512975 (Version 3)
Quarter: 2021Q3

REPORT INFORMATION
  Report Type: Spontaneous
  Country: FR (occurrence: FR)
  Receive Date: 20210709
  Receipt Date: 20210826
  Transmission Date: 20211014
  Serious: Yes (Other)
  Sender: FDA-Public Use
  Company Number: FR-REGENERON PHARMACEUTICALS, INC.-2021-66456

PATIENT

DRUGS (2)
  1. EYLEA [Suspect]
     Active Substance: AFLIBERCEPT
     Dosage: RIGHT EYE (OD), LAST EYLEA INJECTION PRIOR TO ONSET OF EVENTS
     Dates: start: 20210603, end: 20210603
  2. EYLEA [Suspect]
     Active Substance: AFLIBERCEPT
     Indication: NEOVASCULAR AGE-RELATED MACULAR DEGENERATION
     Dosage: RIGHT EYE (OD)
     Dates: start: 20210506, end: 20210506

REACTIONS (2)
  - Eye pain [Unknown]
  - Amaurosis fugax [Recovered/Resolved]
